FAERS Safety Report 15903422 (Version 3)
Quarter: 2019Q1

REPORT INFORMATION
  Report Type: Spontaneous
  Country: US (occurrence: US)
  Receive Date: 20190202
  Receipt Date: 20190225
  Transmission Date: 20190417
  Serious: Yes (Hospitalization, Other)
  Sender: FDA-Public Use
  Company Number: US-CELGENEUS-USA-20190108979

PATIENT
  Age: 53 Year
  Sex: Female
  Weight: 71.73 kg

DRUGS (2)
  1. REVLIMID [Suspect]
     Active Substance: LENALIDOMIDE
     Indication: PLASMA CELL MYELOMA
     Dosage: 25 MILLIGRAM
     Route: 048
     Dates: start: 201809
  2. REVLIMID [Suspect]
     Active Substance: LENALIDOMIDE
     Dosage: 25 MILLIGRAM
     Route: 048
     Dates: start: 20190122

REACTIONS (10)
  - Lung infection [Unknown]
  - Red blood cell count decreased [Unknown]
  - Nasopharyngitis [Unknown]
  - Nausea [Unknown]
  - Pyrexia [Unknown]
  - Pyrexia [Unknown]
  - Pneumonia [Unknown]
  - Asthenia [Unknown]
  - Hepatotoxicity [Unknown]
  - Generalised oedema [Unknown]

NARRATIVE: CASE EVENT DATE: 20190202
